FAERS Safety Report 4600274-8 (Version None)
Quarter: 2005Q1

REPORT INFORMATION
  Report Type: 
  Country: None (occurrence: None)
  Receive Date: 20050307
  Receipt Date: 20050124
  Transmission Date: 20050727
  Serious: Yes (Life-Threatening, Hospitalization, Disabling)
  Sender: FDA-Public Use
  Company Number: DE-GLAXOSMITHKLINE-D0045710A

PATIENT
  Age: 71 Year
  Sex: Male
  Weight: 71 kg

DRUGS (1)
  1. LEUKERAN [Suspect]
     Indication: CHRONIC LYMPHOCYTIC LEUKAEMIA
     Dosage: 2MG UNKNOWN
     Route: 048
     Dates: end: 20041201

REACTIONS (5)
  - BILE DUCT CANCER [None]
  - BILE DUCT OBSTRUCTION [None]
  - CHOLESTASIS [None]
  - JAUNDICE [None]
  - TRANSAMINASES INCREASED [None]
